FAERS Safety Report 20657674 (Version 1)
Quarter: 2022Q1

REPORT INFORMATION
  Report Type: Spontaneous
  Country: US (occurrence: US)
  Receive Date: 20220331
  Receipt Date: 20220331
  Transmission Date: 20220423
  Serious: No
  Sender: FDA-Public Use
  Company Number: US-NEUROCRINE BIOSCIENCES INC.-2022NBI01687

PATIENT

DRUGS (5)
  1. INGREZZA [Suspect]
     Active Substance: VALBENAZINE
     Indication: Tardive dyskinesia
     Dosage: 40 MILLIGRAM, QD AT NIGHT
     Route: 048
  2. CYMBALTA [Suspect]
     Active Substance: DULOXETINE HYDROCHLORIDE
     Dosage: 20 MILLIGRAM
  3. ABILIFY [Concomitant]
     Active Substance: ARIPIPRAZOLE
     Dosage: 400 MILLIGRAM,SHOT Q 30 DAYS
  4. COVID-19 VACCINE [Concomitant]
  5. BUSPIRONE [Concomitant]
     Active Substance: BUSPIRONE HYDROCHLORIDE
     Dosage: 5 OR 10MG

REACTIONS (5)
  - Tardive dyskinesia [Recovering/Resolving]
  - Blood cholesterol increased [Recovering/Resolving]
  - Sedation [Recovering/Resolving]
  - Asthenia [Recovering/Resolving]
  - Dizziness [Recovering/Resolving]
